FAERS Safety Report 16494301 (Version 1)
Quarter: 2019Q2

REPORT INFORMATION
  Report Type: Spontaneous
  Country: JP (occurrence: JP)
  Receive Date: 20190628
  Receipt Date: 20190628
  Transmission Date: 20190711
  Serious: Yes (Hospitalization, Other)
  Sender: FDA-Public Use
  Company Number: JP-PFIZER INC-2019268008

PATIENT

DRUGS (1)
  1. ZYVOX [Suspect]
     Active Substance: LINEZOLID
     Indication: ABSCESS
     Dosage: UNK

REACTIONS (3)
  - Condition aggravated [Unknown]
  - Urinary tract infection [Unknown]
  - Bacterial sepsis [Unknown]
